FAERS Safety Report 25201117 (Version 3)
Quarter: 2025Q2

REPORT INFORMATION
  Report Type: Report from Study
  Country: US (occurrence: US)
  Receive Date: 20250416
  Receipt Date: 20250430
  Transmission Date: 20250716
  Serious: Yes (Other)
  Sender: ABBVIE
  Company Number: US-ABBVIE-6221530

PATIENT
  Age: 73 Year
  Sex: Female
  Weight: 183 kg

DRUGS (1)
  1. VIBERZI [Suspect]
     Active Substance: ELUXADOLINE
     Indication: Product used for unknown indication
     Dosage: 75 MGS?FORM: CAPLET?START DATE ; BEEN TAKING SEVERAL YEARS?FREQUENCY: ONCE DAILY
     Route: 048

REACTIONS (1)
  - Cyst [Recovering/Resolving]
